FAERS Safety Report 8557730-X (Version None)
Quarter: 2012Q2

REPORT INFORMATION
  Report Type: 
  Country: None (occurrence: None)
  Receive Date: 20120418
  Receipt Date: 20080514
  Transmission Date: 20120825
  Serious: Yes (Other)
  Sender: FDA-Public Use
  Company Number: PHEH2008US04586

PATIENT

DRUGS (2)
  1. DIOVAN [Suspect]
  2. DIOVAN HCT [Suspect]

REACTIONS (4)
  - PRURITUS [None]
  - HYPERSENSITIVITY [None]
  - ANGIOEDEMA [None]
  - FLUSHING [None]
